FAERS Safety Report 5309559-3 (Version None)
Quarter: 2007Q2

REPORT INFORMATION
  Report Type: 
  Country: None (occurrence: None)
  Receive Date: 20070427
  Receipt Date: 20070312
  Transmission Date: 20071010
  Serious: No
  Sender: FDA-Public Use
  Company Number: US-GLAXOSMITHKLINE-A0635704A

PATIENT
  Age: 41 Year
  Sex: Female

DRUGS (4)
  1. DEXEDRINE [Suspect]
     Indication: DEPRESSION
     Dosage: 10MG TWICE PER DAY
     Route: 048
     Dates: start: 20041006
  2. EFFEXOR XR [Concomitant]
     Dosage: 150MG UNKNOWN
     Route: 048
  3. SEROQUEL [Concomitant]
     Dosage: 300MG AT NIGHT
     Route: 048
  4. XANAX [Concomitant]
     Dosage: 1MG AS REQUIRED
     Route: 048

REACTIONS (2)
  - SOMNOLENCE [None]
  - THERAPEUTIC RESPONSE DECREASED [None]
